FAERS Safety Report 24603556 (Version 2)
Quarter: 2025Q3

REPORT INFORMATION
  Report Type: Spontaneous
  Country: US (occurrence: US)
  Receive Date: 20241111
  Receipt Date: 20250728
  Transmission Date: 20251020
  Serious: No
  Sender: CALLIDITAS THERAPEUTICS AB
  Company Number: US-Calliditas-2024CAL02465

PATIENT
  Age: 31 Year
  Sex: Male

DRUGS (5)
  1. TARPEYO [Suspect]
     Active Substance: BUDESONIDE
     Indication: IgA nephropathy
     Dosage: TAKE 4 CAPSULES BY MOUTH ONCE DAILY.
     Route: 048
     Dates: start: 20240202, end: 202507
  2. FARXIGA [Concomitant]
     Active Substance: DAPAGLIFLOZIN PROPANEDIOL
  3. LOSARTAN [Concomitant]
     Active Substance: LOSARTAN
  4. EPIPEN [Concomitant]
     Active Substance: EPINEPHRINE
  5. PROCARDIA [Concomitant]
     Active Substance: NIFEDIPINE

REACTIONS (2)
  - Skin exfoliation [Recovering/Resolving]
  - Rash [Recovering/Resolving]

NARRATIVE: CASE EVENT DATE: 20241001
